FAERS Safety Report 8275494-4 (Version None)
Quarter: 2012Q2

REPORT INFORMATION
  Report Type: 
  Country: None (occurrence: None)
  Receive Date: 20120411
  Receipt Date: 20120328
  Transmission Date: 20120825
  Serious: Yes (Hospitalization)
  Sender: FDA-Public Use
  Company Number: FR-BAXTER-2012BAX001065

PATIENT
  Sex: Male

DRUGS (11)
  1. POTASSIUM CHLORIDE [Concomitant]
     Route: 065
  2. AZATHIOPRINE [Suspect]
     Indication: DERMATOMYOSITIS
     Route: 065
     Dates: start: 20050601, end: 20110808
  3. SYMBICORT [Concomitant]
     Route: 065
  4. VIREAD [Suspect]
     Indication: HEPATITIS B
     Route: 048
     Dates: start: 20110826
  5. OMEPRAZOLE [Concomitant]
     Route: 065
  6. CALCIDOSE VITAMINE D [Concomitant]
     Route: 065
  7. CYCLOPHOSPHAMIDE [Suspect]
     Indication: DERMATOMYOSITIS
     Dosage: 1100 MG
     Route: 042
     Dates: start: 20110826, end: 20111216
  8. FLUCONAZOLE [Suspect]
     Route: 042
     Dates: start: 20110923, end: 20111217
  9. PREDNISONE TAB [Concomitant]
     Route: 065
  10. UROMITEXAN 1 G/10 ML, SOLUTION INJECTABLE POUR PERFUSION EN FLACON [Concomitant]
     Indication: DERMATOMYOSITIS
     Route: 065
  11. AZATHIOPRINE [Suspect]

REACTIONS (1)
  - TRANSAMINASES INCREASED [None]
